FAERS Safety Report 12462458 (Version 1)
Quarter: 2016Q2

REPORT INFORMATION
  Report Type: Spontaneous
  Country: US (occurrence: US)
  Receive Date: 20160614
  Receipt Date: 20160614
  Transmission Date: 20160815
  Serious: No
  Sender: FDA-Public Use
  Company Number: US-ASTRAZENECA-2016SE46252

PATIENT
  Age: 23391 Day
  Sex: Female
  Weight: 95.3 kg

DRUGS (2)
  1. SYMBICORT [Suspect]
     Active Substance: BUDESONIDE\FORMOTEROL FUMARATE DIHYDRATE
     Indication: ASTHMA
     Dosage: 160/4.5 MCG, 2 INHALATIONS,TWICE A DAY.
     Route: 055
     Dates: start: 20160415, end: 20160424
  2. SYMBICORT [Suspect]
     Active Substance: BUDESONIDE\FORMOTEROL FUMARATE DIHYDRATE
     Indication: CHRONIC OBSTRUCTIVE PULMONARY DISEASE
     Dosage: 160/4.5 MCG, 2 INHALATIONS,TWICE A DAY.
     Route: 055
     Dates: start: 20160415, end: 20160424

REACTIONS (8)
  - Blood pressure increased [Unknown]
  - Feeling abnormal [Unknown]
  - Oropharyngeal pain [Unknown]
  - Pain [Unknown]
  - Chest pain [Not Recovered/Not Resolved]
  - Nervousness [Not Recovered/Not Resolved]
  - Tremor [Not Recovered/Not Resolved]
  - Increased viscosity of upper respiratory secretion [Unknown]

NARRATIVE: CASE EVENT DATE: 20160415
